FAERS Safety Report 7296224-9 (Version None)
Quarter: 2011Q1

REPORT INFORMATION
  Report Type: 
  Country: None (occurrence: None)
  Receive Date: 20110204
  Receipt Date: 20110125
  Transmission Date: 20110831
  Serious: Yes (Hospitalization)
  Sender: FDA-Public Use
  Company Number: 2010MA000188

PATIENT
  Age: 34 Year
  Sex: Female
  Weight: 78.9 kg

DRUGS (21)
  1. ASPIRIN [Concomitant]
  2. ERYTHROMYCIN [Concomitant]
  3. MEFENAMIC ACID [Concomitant]
  4. CEPHALEXIN [Concomitant]
  5. FUROSEMIDE [Concomitant]
  6. VENTOLIN [Concomitant]
  7. FLUTICASONE [Concomitant]
  8. SERETIDE [Concomitant]
  9. MULTIVITAMIN [Concomitant]
  10. LACTULOSE [Concomitant]
  11. AMOXICILLIN [Concomitant]
  12. BECLOMETASONE DIPROPIONATE [Concomitant]
  13. ACETAMINOPHEN [Concomitant]
  14. TRAMADOL HCL [Concomitant]
  15. LANSOPRAZOLE [Concomitant]
  16. SENNA [Concomitant]
  17. MEFENAMIC ACID [Concomitant]
  18. CHLORAMPHENICOL [Concomitant]
  19. SALBUTAMOL [Concomitant]
  20. DICLOFENAC SODIUM [Suspect]
     Indication: MENSTRUAL DISORDER
     Dosage: 50 MG;TID;PO
     Route: 048
     Dates: start: 20080620
  21. SAMETEROL [Concomitant]

REACTIONS (23)
  - SKIN HYPERPIGMENTATION [None]
  - MUSCLE ATROPHY [None]
  - URINARY TRACT INFECTION [None]
  - DEHYDRATION [None]
  - PRURITUS [None]
  - SEPSIS [None]
  - PAIN IN EXTREMITY [None]
  - DYSURIA [None]
  - DIARRHOEA [None]
  - KIDNEY ENLARGEMENT [None]
  - OEDEMA PERIPHERAL [None]
  - EYE PAIN [None]
  - DEPRESSION [None]
  - FOREIGN BODY SENSATION IN EYES [None]
  - AMENORRHOEA [None]
  - BLISTER [None]
  - RENAL FAILURE ACUTE [None]
  - PHOTOPHOBIA [None]
  - WEIGHT DECREASED [None]
  - DYSMENORRHOEA [None]
  - SWELLING FACE [None]
  - PUBIC PAIN [None]
  - NEPHROPATHY TOXIC [None]
